FAERS Safety Report 23306837 (Version 1)
Quarter: 2023Q4

REPORT INFORMATION
  Report Type: Spontaneous
  Country: IT (occurrence: IT)
  Receive Date: 20231218
  Receipt Date: 20231218
  Transmission Date: 20240110
  Serious: Yes (Hospitalization)
  Sender: FDA-Public Use
  Company Number: None

PATIENT

DRUGS (3)
  1. LAMOTRIGINE [Suspect]
     Active Substance: LAMOTRIGINE
     Indication: Intentional overdose
     Dosage: 100 MG
     Route: 048
     Dates: start: 20231204, end: 20231204
  2. RIVOTRIL [Suspect]
     Active Substance: CLONAZEPAM
     Indication: Intentional overdose
     Dosage: 25 MG
     Route: 048
     Dates: start: 20231204, end: 20231204
  3. KEPPRA [Suspect]
     Active Substance: LEVETIRACETAM
     Indication: Intentional overdose
     Dosage: 2 G
     Route: 048
     Dates: start: 20231204, end: 20231204

REACTIONS (3)
  - Somnolence [Not Recovered/Not Resolved]
  - Sopor [Not Recovered/Not Resolved]
  - Intentional overdose [Not Recovered/Not Resolved]

NARRATIVE: CASE EVENT DATE: 20231204
